FAERS Safety Report 12267281 (Version 2)
Quarter: 2017Q1

REPORT INFORMATION
  Report Type: Spontaneous
  Country: CA (occurrence: CA)
  Receive Date: 20160414
  Receipt Date: 20170125
  Transmission Date: 20170428
  Serious: Yes (Other)
  Sender: FDA-Public Use
  Company Number: PHHY2016CA048396

PATIENT
  Age: 11 Year
  Sex: Male

DRUGS (5)
  1. RITALIN SR [Suspect]
     Active Substance: METHYLPHENIDATE HYDROCHLORIDE
     Indication: EPILEPSY
  2. RITALIN SR [Suspect]
     Active Substance: METHYLPHENIDATE HYDROCHLORIDE
     Indication: TOURETTE^S DISORDER
  3. RITALIN SR [Suspect]
     Active Substance: METHYLPHENIDATE HYDROCHLORIDE
     Indication: ATTENTION DEFICIT/HYPERACTIVITY DISORDER
     Dosage: 40 MG, UNK
     Route: 065
  4. RITALIN SR [Suspect]
     Active Substance: METHYLPHENIDATE HYDROCHLORIDE
     Indication: FRAGILE X CARRIER
  5. MELATONIN [Concomitant]
     Active Substance: MELATONIN
     Indication: PRODUCT USED FOR UNKNOWN INDICATION
     Route: 065

REACTIONS (5)
  - Hallucination, auditory [Not Recovered/Not Resolved]
  - Cognitive disorder [Not Recovered/Not Resolved]
  - Hallucination, visual [Not Recovered/Not Resolved]
  - Abnormal behaviour [Not Recovered/Not Resolved]
  - Illusion [Not Recovered/Not Resolved]
